FAERS Safety Report 7190778-9 (Version None)
Quarter: 2010Q4

REPORT INFORMATION
  Report Type: 
  Country: None (occurrence: None)
  Receive Date: 20101223
  Receipt Date: 20101215
  Transmission Date: 20110411
  Serious: Yes (Life-Threatening)
  Sender: FDA-Public Use
  Company Number: NL-NAPPMUNDI-GBR-2010-0007521

PATIENT
  Sex: Male

DRUGS (6)
  1. BUTRANS 5 MICROGRAM/UUR [Suspect]
     Indication: PRODUCT USED FOR UNKNOWN INDICATION
     Dosage: 1 DF, WEEKLY
     Route: 062
     Dates: start: 20100923
  2. BUTRANS 10 MICROGRAM/URR [Suspect]
     Indication: PRODUCT USED FOR UNKNOWN INDICATION
     Dosage: 10 MCG, Q1H
     Route: 062
  3. OXAZEPAM [Suspect]
     Dosage: 10 MG, DAILY
     Dates: start: 20101122
  4. METAMUCIL-2 [Concomitant]
     Dosage: 1 DF, DAILY
     Dates: start: 20100322
  5. MOVICOLON [Concomitant]
     Dosage: 1 DF, DAILY
     Dates: start: 20100906
  6. PROPRANOLOL [Concomitant]
     Dosage: 10 MG, DAILY
     Dates: start: 20101122

REACTIONS (1)
  - SUICIDAL IDEATION [None]
